FAERS Safety Report 25797003 (Version 1)
Quarter: 2025Q3

REPORT INFORMATION
  Report Type: Spontaneous
  Country: US (occurrence: None)
  Receive Date: 20250912
  Receipt Date: 20250912
  Transmission Date: 20251021
  Serious: Yes (Disabling)
  Sender: FDA-CTU
  Company Number: None

PATIENT
  Age: 28 Year
  Sex: Female
  Weight: 54 kg

DRUGS (7)
  1. PAXLOVID [Suspect]
     Active Substance: NIRMATRELVIR\RITONAVIR
     Dates: start: 20250904, end: 20250908
  2. Trellegy [Concomitant]
  3. XOLAIR [Concomitant]
     Active Substance: OMALIZUMAB
  4. SINGULAIR [Concomitant]
     Active Substance: MONTELUKAST SODIUM
  5. hydroyzine [Concomitant]
  6. PEPCID [Concomitant]
     Active Substance: FAMOTIDINE
  7. XIIDRA [Concomitant]
     Active Substance: LIFITEGRAST

REACTIONS (9)
  - Rebound effect [None]
  - Pyrexia [None]
  - Nonspecific reaction [None]
  - Pain [None]
  - Oropharyngeal pain [None]
  - Asthma [None]
  - Headache [None]
  - Brain fog [None]
  - SARS-CoV-2 test positive [None]

NARRATIVE: CASE EVENT DATE: 20250910
